FAERS Safety Report 12407590 (Version 5)
Quarter: 2016Q4

REPORT INFORMATION
  Report Type: Report from Study
  Country: DE (occurrence: DE)
  Receive Date: 20160526
  Receipt Date: 20161011
  Transmission Date: 20170207
  Serious: Yes (Hospitalization)
  Sender: FDA-Public Use
  Company Number: DE-ROCHE-1682751

PATIENT
  Age: 83 Year
  Sex: Female
  Weight: 78 kg

DRUGS (16)
  1. BISOPROLOL [Concomitant]
     Active Substance: BISOPROLOL
     Indication: HYPERTONIA
     Route: 048
  2. CARBIMAZOL [Concomitant]
     Active Substance: CARBIMAZOLE
     Indication: HYPERTHYROIDISM
     Route: 048
  3. PANTOZOL [Concomitant]
     Active Substance: PANTOPRAZOLE SODIUM
     Indication: GASTRIC ULCER
     Route: 048
  4. ALLOPURINOL. [Concomitant]
     Active Substance: ALLOPURINOL
     Indication: BLOOD URIC ACID INCREASED
     Route: 048
     Dates: start: 20151010
  5. POSTERISAN [Concomitant]
     Active Substance: LIDOCAINE
     Indication: ANAL FISSURE
     Route: 062
     Dates: start: 20151230
  6. NOVALGIN [Concomitant]
     Active Substance: METAMIZOLE SODIUM
     Indication: LUMBAR SPINAL STENOSIS
     Route: 048
     Dates: start: 20151023
  7. VALTREX [Concomitant]
     Active Substance: VALACYCLOVIR HYDROCHLORIDE
     Indication: HERPES VIRUS INFECTION
     Route: 048
     Dates: start: 20151109, end: 20151125
  8. VOLTAREN [Concomitant]
     Active Substance: DICLOFENAC SODIUM
     Indication: LUMBAR SPINAL STENOSIS
     Route: 048
  9. NITROGLYCERIN. [Concomitant]
     Active Substance: NITROGLYCERIN
     Indication: CHEST DISCOMFORT
     Route: 042
     Dates: start: 20151223, end: 20151223
  10. CANDESARTAN [Concomitant]
     Active Substance: CANDESARTAN
     Indication: HYPERTONIA
     Route: 048
  11. FOLSAN [Concomitant]
     Active Substance: FOLIC ACID
     Indication: FOLATE DEFICIENCY
     Route: 048
     Dates: start: 20151125
  12. POSTERISAN [Concomitant]
     Active Substance: LIDOCAINE
     Route: 061
     Dates: start: 20151230, end: 20160109
  13. VENETOCLAX [Suspect]
     Active Substance: VENETOCLAX
     Indication: CHRONIC LYMPHOCYTIC LEUKAEMIA
     Dosage: 20 MG DAILY DURING CYCLE 1, DAY 22-28; 50 MG DAILY DURING CYCLE 2, DAY 1-7; 100 MG DAILY DURING CYCL
     Route: 048
     Dates: start: 20151103
  14. OBINUTUZUMAB [Suspect]
     Active Substance: OBINUTUZUMAB
     Indication: CHRONIC LYMPHOCYTIC LEUKAEMIA
     Dosage: 100 MG ON DAY 1 AND 900 MG ON DAY 2 OF CYCLE 1 (SPLIT DOSE) AND THEN 1000 MG ON DAY 8 AND DAY 15 OF
     Route: 042
     Dates: start: 20151013
  15. XARELTO [Concomitant]
     Active Substance: RIVAROXABAN
     Dosage: INDICATION:- CARDIAC RHYTMN DISORDER
     Route: 048
  16. TORASEMID [Concomitant]
     Active Substance: TORSEMIDE
     Indication: ATRIAL FIBRILLATION
     Route: 048
     Dates: start: 20151109

REACTIONS (1)
  - Lumbar spinal stenosis [Recovered/Resolved with Sequelae]

NARRATIVE: CASE EVENT DATE: 20151221
